FAERS Safety Report 6689218-5 (Version None)
Quarter: 2010Q2

REPORT INFORMATION
  Report Type: 
  Country: None (occurrence: None)
  Receive Date: 20100413
  Receipt Date: 20100406
  Transmission Date: 20101027
  Serious: Yes (Hospitalization, Other)
  Sender: FDA-Public Use
  Company Number: 2010SP003964

PATIENT
  Age: 43 Year
  Sex: Female
  Weight: 83.9154 kg

DRUGS (2)
  1. NUVARING [Suspect]
     Indication: CONTRACEPTION
     Dates: start: 20090322, end: 20090918
  2. MULTI-VITAMIN [Concomitant]

REACTIONS (3)
  - CARDIAC ANEURYSM [None]
  - HYPERTENSION [None]
  - ISCHAEMIC CEREBRAL INFARCTION [None]
